FAERS Safety Report 20643043 (Version 11)
Quarter: 2025Q3

REPORT INFORMATION
  Report Type: Report from Study
  Country: US (occurrence: US)
  Receive Date: 20220328
  Receipt Date: 20250910
  Transmission Date: 20251020
  Serious: Yes (Hospitalization)
  Sender: TAKEDA
  Company Number: US-TAKEDA-US201933243

PATIENT
  Age: 48 Year
  Sex: Female

DRUGS (8)
  1. LANADELUMAB [Suspect]
     Active Substance: LANADELUMAB
     Indication: Hereditary angioedema
  2. LANADELUMAB [Suspect]
     Active Substance: LANADELUMAB
     Indication: Immune system disorder
  3. LANADELUMAB [Suspect]
     Active Substance: LANADELUMAB
     Dosage: 300 MILLIGRAM, Q2WEEKS
  4. FIRAZYR [Suspect]
     Active Substance: ICATIBANT ACETATE
     Indication: Immune system disorder
  5. FIRAZYR [Suspect]
     Active Substance: ICATIBANT ACETATE
  6. FIRAZYR [Suspect]
     Active Substance: ICATIBANT ACETATE
  7. FIRAZYR [Suspect]
     Active Substance: ICATIBANT ACETATE
  8. FIRAZYR [Suspect]
     Active Substance: ICATIBANT ACETATE

REACTIONS (21)
  - Back injury [Unknown]
  - Back pain [Unknown]
  - Intervertebral disc protrusion [Unknown]
  - Chest pain [Unknown]
  - Lipids increased [Unknown]
  - Injection site pain [Unknown]
  - Hernia [Unknown]
  - Insurance issue [Unknown]
  - Product use complaint [Unknown]
  - Inappropriate schedule of product administration [Unknown]
  - Product use issue [Unknown]
  - Influenza [Recovering/Resolving]
  - Ankle fracture [Recovering/Resolving]
  - Tibia fracture [Recovering/Resolving]
  - Muscle strain [Unknown]
  - Fall [Unknown]
  - Menopausal symptoms [Unknown]
  - Injury [Unknown]
  - Hereditary angioedema [Unknown]
  - Injection site reaction [Unknown]
  - Rash pruritic [Unknown]

NARRATIVE: CASE EVENT DATE: 20191001
